FAERS Safety Report 12714928 (Version 3)
Quarter: 2016Q3

REPORT INFORMATION
  Report Type: Report from Study
  Country: US (occurrence: US)
  Receive Date: 20160905
  Receipt Date: 20160919
  Transmission Date: 20161109
  Serious: Yes (Other)
  Sender: FDA-Public Use
  Company Number: US-AMGEN-USASL2016113661

PATIENT
  Age: 67 Year
  Sex: Female

DRUGS (1)
  1. ENBREL [Suspect]
     Active Substance: ETANERCEPT
     Indication: RHEUMATOID ARTHRITIS
     Dosage: UNK MG, QWK
     Route: 065
     Dates: start: 20160825

REACTIONS (11)
  - Injection site swelling [Not Recovered/Not Resolved]
  - Injection site mass [Not Recovered/Not Resolved]
  - Incorrect product storage [Unknown]
  - Eyelid irritation [Not Recovered/Not Resolved]
  - Injection site erythema [Unknown]
  - Rash generalised [Unknown]
  - Diarrhoea [Unknown]
  - Skin burning sensation [Unknown]
  - Rheumatoid arthritis [Not Recovered/Not Resolved]
  - Injection site rash [Unknown]
  - Skin disorder [Unknown]

NARRATIVE: CASE EVENT DATE: 2016
